FAERS Safety Report 6718302-2 (Version None)
Quarter: 2010Q2

REPORT INFORMATION
  Report Type: 
  Country: None (occurrence: None)
  Receive Date: 20100510
  Receipt Date: 20100428
  Transmission Date: 20101027
  Serious: Yes (Hospitalization)
  Sender: FDA-Public Use
  Company Number: TW-TEVA-233370ISR

PATIENT
  Age: 65 Year
  Sex: Male
  Weight: 69 kg

DRUGS (11)
  1. FLUOROURACIL [Suspect]
     Indication: COLORECTAL CANCER
     Route: 040
     Dates: start: 20080908, end: 20081008
  2. FLUOROURACIL [Suspect]
     Route: 041
     Dates: start: 20080908, end: 20080910
  3. FOLINIC ACID [Suspect]
     Indication: COLORECTAL CANCER
     Route: 042
     Dates: start: 20080908, end: 20080908
  4. IRINOTECAN HCL [Suspect]
     Indication: COLORECTAL CANCER
     Route: 042
     Dates: start: 20080908, end: 20080908
  5. SUNITINIB MALATE [Suspect]
     Indication: COLORECTAL CANCER
     Route: 048
     Dates: start: 20080908, end: 20080926
  6. VITAMINS, OTHER COMBINATIONS [Concomitant]
     Dates: start: 20080916
  7. BENZYDAMINE [Concomitant]
     Dates: start: 20080916
  8. LOPERAMIDE [Concomitant]
     Dates: start: 20080924, end: 20080926
  9. ZOLPIDEM [Concomitant]
     Dates: start: 20080923
  10. CLONAZEPAM [Concomitant]
     Dates: start: 20080923
  11. MEBEVERINE [Concomitant]
     Dates: start: 20080924, end: 20080926

REACTIONS (1)
  - INTESTINAL PERFORATION [None]
